FAERS Safety Report 8875356 (Version 1)
Quarter: 2012Q4

REPORT INFORMATION
  Report Type: 
  Country: US (occurrence: US)
  Receive Date: 20121029
  Receipt Date: 20121029
  Transmission Date: 20130627
  Serious: No
  Sender: FDA-Public Use
  Company Number: US-B.I. PHARMACEUTICALS,INC./RIDGEFIELD-2012-BP-26255BP

PATIENT
  Sex: Female

DRUGS (2)
  1. SPIRIVA [Suspect]
     Indication: BRONCHITIS CHRONIC
     Route: 055
  2. SPIRIVA [Suspect]
     Dosage: 18 mcg
     Route: 048
     Dates: start: 20121022, end: 20121022

REACTIONS (1)
  - Incorrect route of drug administration [Recovered/Resolved]
